FAERS Safety Report 9125292 (Version 1)
Quarter: 2013Q1

REPORT INFORMATION
  Report Type: Spontaneous
  Country: PR (occurrence: PR)
  Receive Date: 20130227
  Receipt Date: 20130227
  Transmission Date: 20140127
  Serious: Yes (Hospitalization, Other)
  Sender: FDA-Public Use
  Company Number: PR-ABBOTT-13P-131-1053290-00

PATIENT
  Age: 34 Year
  Sex: Male
  Weight: 79.45 kg

DRUGS (5)
  1. HUMIRA [Suspect]
     Indication: CROHN^S DISEASE
     Route: 058
     Dates: start: 200811, end: 200911
  2. KEPPRA [Concomitant]
     Indication: EPILEPSY
     Route: 048
     Dates: start: 2006, end: 20130207
  3. IMURAN [Concomitant]
     Indication: CROHN^S DISEASE
     Route: 048
     Dates: start: 201209, end: 20130207
  4. PROVENTIL PUMP [Concomitant]
     Indication: ASTHMA
     Dosage: 1 PUMP DAILY AS NEEDED
     Route: 055
  5. ADVAIR PUMP [Concomitant]
     Indication: ASTHMA
     Dosage: 1 PUMP DAILY
     Route: 055

REACTIONS (5)
  - Intestinal stenosis [Not Recovered/Not Resolved]
  - Intestinal obstruction [Not Recovered/Not Resolved]
  - Abdominal pain [Recovered/Resolved]
  - Vomiting [Recovered/Resolved]
  - Diarrhoea [Recovered/Resolved]
